FAERS Safety Report 9802836 (Version 2)
Quarter: 2014Q1

REPORT INFORMATION
  Report Type: Report from Study
  Country: JP (occurrence: JP)
  Receive Date: 20140108
  Receipt Date: 20140115
  Transmission Date: 20141002
  Serious: Yes (Hospitalization)
  Sender: FDA-Public Use
  Company Number: JP-ROCHE-1330150

PATIENT
  Sex: 0

DRUGS (6)
  1. RITUXIMAB [Suspect]
     Indication: NON-HODGKIN^S LYMPHOMA
     Route: 065
  2. CYCLOPHOSPHAMIDE [Suspect]
     Indication: NON-HODGKIN^S LYMPHOMA
     Route: 065
  3. DOXORUBICIN [Suspect]
     Indication: NON-HODGKIN^S LYMPHOMA
     Route: 065
  4. VINCRISTINE [Suspect]
     Indication: NON-HODGKIN^S LYMPHOMA
     Route: 065
  5. PREDNISOLONE [Suspect]
     Indication: NON-HODGKIN^S LYMPHOMA
     Route: 065
  6. BENDAMUSTINE [Suspect]
     Indication: NON-HODGKIN^S LYMPHOMA
     Route: 065

REACTIONS (3)
  - Pneumocystis jirovecii pneumonia [Unknown]
  - Compression fracture [Unknown]
  - Gastrointestinal carcinoma [Unknown]
